FAERS Safety Report 21071761 (Version 7)
Quarter: 2023Q4

REPORT INFORMATION
  Report Type: Spontaneous
  Country: US (occurrence: US)
  Receive Date: 20220712
  Receipt Date: 20231124
  Transmission Date: 20240110
  Serious: Yes (Other)
  Sender: FDA-Public Use
  Company Number: US-PFIZER INC-PV202200020800

PATIENT
  Age: 74 Year
  Sex: Male
  Weight: 79.365 kg

DRUGS (2)
  1. VYNDAMAX [Suspect]
     Active Substance: TAFAMIDIS
     Indication: Cardiac amyloidosis
     Dosage: 61 MG, EVERY MORNING/ONE PILL A DAY AFTER HAD BREAKFAST WITH A GLASS OF WATER
     Dates: start: 2022
  2. VYNDAMAX [Suspect]
     Active Substance: TAFAMIDIS
     Indication: Acquired ATTR amyloidosis

REACTIONS (6)
  - Upper limb fracture [Recovered/Resolved]
  - COVID-19 [Unknown]
  - Road traffic accident [Recovered/Resolved]
  - Skin abrasion [Recovered/Resolved]
  - Contusion [Recovered/Resolved]
  - Nervous system disorder [Not Recovered/Not Resolved]

NARRATIVE: CASE EVENT DATE: 20230419
